FAERS Safety Report 18534383 (Version 2)
Quarter: 2022Q3

REPORT INFORMATION
  Report Type: Spontaneous
  Country: CA (occurrence: CA)
  Receive Date: 20201123
  Receipt Date: 20220712
  Transmission Date: 20221027
  Serious: Yes (Other)
  Sender: FDA-Public Use
  Company Number: CA-GLAXOSMITHKLINE-CA2020GSK231116

PATIENT

DRUGS (2)
  1. AVANDIA [Suspect]
     Active Substance: ROSIGLITAZONE MALEATE
     Indication: Diabetes mellitus
     Dosage: UNK UNK, QD
     Route: 048
     Dates: start: 2001, end: 20060731
  2. AVANDIA [Suspect]
     Active Substance: ROSIGLITAZONE MALEATE
     Dosage: 8 MG, QD
     Route: 048

REACTIONS (6)
  - Ventricular fibrillation [Unknown]
  - Stent placement [Unknown]
  - Coronary arterial stent insertion [Unknown]
  - Cardiac disorder [Unknown]
  - Coronary angioplasty [Unknown]
  - Coronary artery disease [Unknown]
